FAERS Safety Report 22399338 (Version 2)
Quarter: 2023Q4

REPORT INFORMATION
  Report Type: Spontaneous
  Country: CN (occurrence: CN)
  Receive Date: 20230602
  Receipt Date: 20231027
  Transmission Date: 20240110
  Serious: Yes (Other)
  Sender: FDA-Public Use
  Company Number: CN-SUN PHARMACEUTICAL INDUSTRIES LTD-2023R1-392405

PATIENT
  Age: 50 Year
  Sex: Male

DRUGS (4)
  1. GABAPENTIN [Suspect]
     Active Substance: GABAPENTIN
     Indication: Herpes zoster oticus
     Dosage: 0.3 GRAM, TID
     Route: 065
  2. PREGABALIN [Suspect]
     Active Substance: PREGABALIN
     Indication: Herpes zoster oticus
     Dosage: 150 MILLIGRAM, BID
     Route: 065
  3. ACETAMINOPHEN\TRAMADOL [Suspect]
     Active Substance: ACETAMINOPHEN\TRAMADOL
     Indication: Herpes zoster oticus
     Dosage: 362.5 GRAM, TID
     Route: 065
  4. EPERISONE HYDROCHLORIDE [Suspect]
     Active Substance: EPERISONE HYDROCHLORIDE
     Indication: Herpes zoster oticus
     Dosage: 75 MILLIGRAM, TID
     Route: 048

REACTIONS (1)
  - Drug ineffective [Unknown]
